FAERS Safety Report 13789148 (Version 1)
Quarter: 2017Q3

REPORT INFORMATION
  Report Type: Spontaneous
  Country: US (occurrence: US)
  Receive Date: 20170725
  Receipt Date: 20170725
  Transmission Date: 20171127
  Serious: No
  Sender: FDA-Public Use
  Company Number: US-UNITED THERAPEUTICS-UNT-2016-019545

PATIENT
  Sex: Female

DRUGS (2)
  1. ORENITRAM [Suspect]
     Active Substance: TREPROSTINIL
     Indication: PULMONARY ARTERIAL HYPERTENSION
     Dosage: 6 MG, TID
     Route: 048
     Dates: start: 20160810
  2. ORENITRAM [Suspect]
     Active Substance: TREPROSTINIL
     Dosage: 6 MG, TID (TWO 2.5 MG AND ONE 1MG TABLET)
     Route: 048
     Dates: start: 20161129

REACTIONS (4)
  - Diarrhoea [Not Recovered/Not Resolved]
  - Vasoconstriction [Not Recovered/Not Resolved]
  - Headache [Not Recovered/Not Resolved]
  - Therapy non-responder [Unknown]

NARRATIVE: CASE EVENT DATE: 201611
